FAERS Safety Report 11359367 (Version 2)
Quarter: 2015Q3

REPORT INFORMATION
  Report Type: Spontaneous
  Country: US (occurrence: US)
  Receive Date: 20150807
  Receipt Date: 20150923
  Transmission Date: 20151125
  Serious: Yes (Other)
  Sender: FDA-Public Use
  Company Number: US-ALLERGAN-1515214US

PATIENT
  Age: 72 Year
  Sex: Female

DRUGS (1)
  1. RESTASIS [Suspect]
     Active Substance: CYCLOSPORINE
     Indication: DRY EYE
     Dosage: UNK
     Route: 047
     Dates: start: 2012

REACTIONS (3)
  - Cataract [Recovered/Resolved]
  - Eye inflammation [Not Recovered/Not Resolved]
  - Vitreous floaters [Not Recovered/Not Resolved]

NARRATIVE: CASE EVENT DATE: 201506
